FAERS Safety Report 19063987 (Version 1)
Quarter: 2021Q1

REPORT INFORMATION
  Report Type: Report from Study
  Country: IT (occurrence: IT)
  Receive Date: 20210326
  Receipt Date: 20210326
  Transmission Date: 20210420
  Serious: Yes (Hospitalization)
  Sender: FDA-Public Use
  Company Number: IT-TEVA-2021-IT-1893379

PATIENT
  Age: 65 Year
  Sex: Male

DRUGS (6)
  1. DEPAKIN CHRONO 500 MG COMPRESSE A RILASCIO PROLUNGATO [Concomitant]
     Active Substance: VALPROIC ACID
     Dosage: EXTENDED RELEASE TABLETS
  2. GABAPENTIN. [Concomitant]
     Active Substance: GABAPENTIN
     Dosage: UNIT DOSE: 400 MILLIGRAM
  3. PERPHENAZINE. [Suspect]
     Active Substance: PERPHENAZINE
     Route: 065
     Dates: start: 20210207
  4. RISPERIDONE. [Concomitant]
     Active Substance: RISPERIDONE
  5. ZOLPIDEM TARTRATE. [Suspect]
     Active Substance: ZOLPIDEM TARTRATE
     Route: 065
     Dates: start: 20210207
  6. CHLORPROMAZINE HYDROCHLORIDE. [Suspect]
     Active Substance: CHLORPROMAZINE HYDROCHLORIDE
     Route: 065
     Dates: start: 20210207

REACTIONS (4)
  - Hyperuricaemia [Unknown]
  - Bradyphrenia [Unknown]
  - Insomnia [Unknown]
  - Choking [Unknown]

NARRATIVE: CASE EVENT DATE: 20210218
